FAERS Safety Report 5728535-X (Version None)
Quarter: 2008Q2

REPORT INFORMATION
  Report Type: 
  Country: None (occurrence: None)
  Receive Date: 20080506
  Receipt Date: 20080501
  Transmission Date: 20081010
  Serious: Yes (Other)
  Sender: FDA-Public Use
  Company Number: GB-TEVA-171087ISR

PATIENT
  Age: 71 Year
  Sex: Male
  Weight: 100 kg

DRUGS (3)
  1. METFORMIN HCL [Suspect]
     Dates: start: 20080412, end: 20080414
  2. PIOGLITAZONE [Suspect]
     Dates: start: 20080418
  3. INSULIN [Suspect]
     Dates: start: 20080414, end: 20080417

REACTIONS (3)
  - LOCAL SWELLING [None]
  - OEDEMA PERIPHERAL [None]
  - PITTING OEDEMA [None]
